FAERS Safety Report 10014679 (Version 2)
Quarter: 2014Q1

REPORT INFORMATION
  Report Type: Spontaneous
  Country: US (occurrence: US)
  Receive Date: 20140317
  Receipt Date: 20140317
  Transmission Date: 20141002
  Serious: Yes (Other)
  Sender: FDA-Public Use
  Company Number: US-BEH-2012034261

PATIENT
  Age: 54 Year
  Sex: Female
  Weight: 65 kg

DRUGS (36)
  1. HIZENTRA [Suspect]
     Indication: HYPOGLOBULINAEMIA
     Dosage: 3 SITES OVER 1-2 HOURS
     Route: 058
     Dates: start: 20121204, end: 20121204
  2. HIZENTRA [Suspect]
     Dosage: 3 SITES OVER 1-2 HOURS
     Route: 058
     Dates: start: 20121211, end: 20121211
  3. HIZENTRA [Suspect]
     Dosage: 3 SITES OVER 1-2 HOURS
     Route: 058
     Dates: start: 20121211, end: 20121211
  4. HIZENTRA [Suspect]
     Dosage: 3 SITES OVER 1-2 HOURS
     Route: 058
     Dates: start: 20121211, end: 20121211
  5. HIZENTRA [Suspect]
     Dosage: 11.7 ML OVER 1-2 HOURS
     Route: 058
  6. HIZENTRA [Suspect]
     Dosage: 11.7 ML OVER 1-2 HOURS
     Route: 058
  7. HIZENTRA [Suspect]
     Dosage: 11.7 ML OVER 1-2 HOURS
     Route: 058
  8. HIZENTRA [Suspect]
     Route: 058
  9. CEFUROXIME AXETIL [Concomitant]
  10. CYMBALTA [Concomitant]
  11. ASTEPRO [Concomitant]
  12. GEODON [Concomitant]
  13. CETIRIZINE [Concomitant]
  14. HYDROXYZINE HCL [Concomitant]
  15. OMEPRAZOLE [Concomitant]
  16. BENZONATATE [Concomitant]
  17. THEOPHYLLINE ER [Concomitant]
  18. CALCIUM+D [Concomitant]
  19. XOPENEX [Concomitant]
  20. DIPHENHYDRAMINE [Concomitant]
     Indication: PREMEDICATION
  21. LIDOCAINE/PRILOCAINE [Concomitant]
     Indication: PREMEDICATION
  22. EPI-PEN [Concomitant]
     Indication: PREMEDICATION
  23. SINGULAIR [Concomitant]
  24. FLUTICASONE [Concomitant]
  25. PATADAY [Concomitant]
  26. LORATADINE [Concomitant]
  27. TRAMADOL [Concomitant]
  28. SIMVASTATIN [Concomitant]
  29. VENTOLIN HFA [Concomitant]
  30. VITAMIN D [Concomitant]
  31. SYMBICORT [Concomitant]
  32. IPRATROPIUM BROMIDE [Concomitant]
  33. SPIRIVA [Concomitant]
  34. AMOX TR-K CLV [Concomitant]
  35. PREDNISONE [Concomitant]
  36. CEPHALEXIN [Concomitant]

REACTIONS (4)
  - Syncope [Unknown]
  - Infusion site mass [Unknown]
  - Infusion site haemorrhage [Unknown]
  - Chills [Recovered/Resolved]
